FAERS Safety Report 21499545 (Version 1)
Quarter: 2022Q4

REPORT INFORMATION
  Report Type: Spontaneous
  Country: US (occurrence: US)
  Receive Date: 20221024
  Receipt Date: 20221024
  Transmission Date: 20230112
  Serious: Yes (Hospitalization, Other)
  Sender: FDA-Public Use
  Company Number: US-BAYER-2022A143384

PATIENT
  Age: 58 Year
  Sex: Male

DRUGS (6)
  1. ADEMPAS [Suspect]
     Active Substance: RIOCIGUAT
     Indication: Pulmonary hypertension
     Dosage: 2.5 MG, TID
     Route: 048
     Dates: start: 20140401
  2. OPSUMIT [Concomitant]
     Active Substance: MACITENTAN
  3. METOLAZONE [Concomitant]
     Active Substance: METOLAZONE
  4. KEFLEX [Concomitant]
     Active Substance: CEPHALEXIN
  5. LASIX [Concomitant]
     Active Substance: FUROSEMIDE
  6. VITAVIT [VITAMIN B COMPLEX] [Concomitant]

REACTIONS (6)
  - Chronic respiratory failure [None]
  - Chronic respiratory failure [None]
  - Dyspnoea [None]
  - Hypervolaemia [None]
  - Chronic obstructive pulmonary disease [None]
  - Pneumonia [None]
